FAERS Safety Report 24717571 (Version 2)
Quarter: 2025Q1

REPORT INFORMATION
  Report Type: Spontaneous
  Country: PR (occurrence: PR)
  Receive Date: 20241210
  Receipt Date: 20250110
  Transmission Date: 20250409
  Serious: No
  Sender: PFIZER
  Company Number: PR-PFIZER INC-202400318245

PATIENT
  Age: 52 Year
  Sex: Male

DRUGS (6)
  1. XELJANZ XR [Suspect]
     Active Substance: TOFACITINIB CITRATE
     Dosage: 11 MG, DAILY
     Route: 048
     Dates: start: 20240602
  2. XELJANZ XR [Suspect]
     Active Substance: TOFACITINIB CITRATE
     Dosage: 11 MG, DAILY
     Route: 048
     Dates: start: 20240602
  3. RESTORIL [Concomitant]
     Active Substance: TEMAZEPAM
  4. LOSARTAN [Concomitant]
     Active Substance: LOSARTAN
  5. LORAZEPAM [Concomitant]
     Active Substance: LORAZEPAM
  6. CYMBALTA [Concomitant]
     Active Substance: DULOXETINE HYDROCHLORIDE

REACTIONS (13)
  - Asthenia [Not Recovered/Not Resolved]
  - Tremor [Not Recovered/Not Resolved]
  - Dengue fever [Recovered/Resolved]
  - Arthralgia [Not Recovered/Not Resolved]
  - Joint swelling [Not Recovered/Not Resolved]
  - Tendonitis [Unknown]
  - Pain in extremity [Unknown]
  - Bursitis [Unknown]
  - Osteoarthritis [Unknown]
  - Feeling hot [Unknown]
  - Limb discomfort [Unknown]
  - Sensitivity to weather change [Unknown]
  - Pain [Unknown]

NARRATIVE: CASE EVENT DATE: 20241101
